FAERS Safety Report 18937795 (Version 1)
Quarter: 2021Q1

REPORT INFORMATION
  Report Type: Spontaneous
  Country: EG (occurrence: EG)
  Receive Date: 20210225
  Receipt Date: 20210225
  Transmission Date: 20210420
  Serious: Yes (Death, Hospitalization, Other)
  Sender: FDA-Public Use
  Company Number: EG-SA-2021SA057869

PATIENT
  Age: 17 Year
  Sex: Male
  Weight: 7 kg

DRUGS (2)
  1. MYOZYME [Suspect]
     Active Substance: ALGLUCOSIDASE ALFA
     Indication: GLYCOGEN STORAGE DISEASE TYPE II
     Dosage: 10 U, QOW
     Route: 042
     Dates: start: 20201114, end: 20201212
  2. MYOZYME [Suspect]
     Active Substance: ALGLUCOSIDASE ALFA
     Indication: GLYCOGEN STORAGE DISEASE TYPE II

REACTIONS (2)
  - Pneumonia [Fatal]
  - Hypoxia [Fatal]

NARRATIVE: CASE EVENT DATE: 20201226
